FAERS Safety Report 5018219-8 (Version None)
Quarter: 2006Q2

REPORT INFORMATION
  Report Type: 
  Country: None (occurrence: None)
  Receive Date: 20060530
  Receipt Date: 20060519
  Transmission Date: 20061013
  Serious: Yes (Other)
  Sender: FDA-Public Use
  Company Number: 2006066517

PATIENT
  Age: 30 Year
  Sex: Female
  Weight: 74.8435 kg

DRUGS (3)
  1. XANAX [Suspect]
     Indication: ANXIETY
     Dosage: 2.5 MG, ORAL
     Route: 048
  2. ZOLOFT [Suspect]
     Indication: DEPRESSION
     Dosage: 200 MG (200 MG, 1 IN 1 D), ORAL
     Route: 048
     Dates: start: 20020101
  3. INTERFERON (INTERFERON) [Concomitant]

REACTIONS (12)
  - DEPRESSION [None]
  - DIARRHOEA [None]
  - DRUG INEFFECTIVE [None]
  - DRUG WITHDRAWAL SYNDROME [None]
  - FATIGUE [None]
  - FEELING ABNORMAL [None]
  - IRRITABILITY [None]
  - MALAISE [None]
  - NAUSEA [None]
  - TREATMENT NONCOMPLIANCE [None]
  - VOMITING [None]
  - WEIGHT INCREASED [None]
